FAERS Safety Report 21395154 (Version 2)
Quarter: 2022Q4

REPORT INFORMATION
  Report Type: Report from Study
  Country: US (occurrence: None)
  Receive Date: 20220930
  Receipt Date: 20221017
  Transmission Date: 20230113
  Serious: Yes (Death, Hospitalization)
  Sender: FDA-Public Use
  Company Number: US-ROCHE-3188629

PATIENT
  Age: 79 Year
  Sex: Male
  Weight: 69.4 kg

DRUGS (2)
  1. ATEZOLIZUMAB [Suspect]
     Active Substance: ATEZOLIZUMAB
     Indication: Small cell lung cancer extensive stage
     Dosage: LAST DOSE ON STUDY WAS 01/NOV/2021. HE RECEIVED 1200 MG ATEZOLIZUMAB OFF STUDY, AT OUTSIDE FACILITY,
     Route: 041
     Dates: start: 20210511, end: 20220107
  2. ATEZOLIZUMAB [Suspect]
     Active Substance: ATEZOLIZUMAB
     Dosage: MOST RECENT DOSE GIVEN ON 02/NOV/2021
     Route: 041
     Dates: start: 20210830

REACTIONS (2)
  - Muscular weakness [Recovered/Resolved]
  - Disease progression [Fatal]

NARRATIVE: CASE EVENT DATE: 20211102
